FAERS Safety Report 21340613 (Version 3)
Quarter: 2024Q2

REPORT INFORMATION
  Report Type: Other
  Country: US (occurrence: None)
  Receive Date: 20220916
  Receipt Date: 20240429
  Transmission Date: 20240716
  Serious: Yes (Other)
  Sender: FDA-Public Use
  Company Number: US-ROCHE-3178682

PATIENT
  Age: 15 Year
  Sex: Male

DRUGS (4)
  1. NUTROPIN AQ [Suspect]
     Active Substance: SOMATROPIN
     Indication: Growth hormone deficiency
     Dosage: NUTROPIN NUSPIN 20 MG PEN, 2.0 MG SQ DAILY
     Route: 058
     Dates: start: 20220908
  2. NUTROPIN AQ [Suspect]
     Active Substance: SOMATROPIN
  3. NUTROPIN AQ [Suspect]
     Active Substance: SOMATROPIN
     Route: 058
  4. NUTROPIN AQ [Suspect]
     Active Substance: SOMATROPIN

REACTIONS (5)
  - Injection site pruritus [Recovered/Resolved]
  - Injection site thrombosis [Recovered/Resolved]
  - Injection site bruising [Unknown]
  - Injection site erythema [Recovered/Resolved]
  - Urticaria [Unknown]

NARRATIVE: CASE EVENT DATE: 20220911
